FAERS Safety Report 17565726 (Version 1)
Quarter: 2020Q1

REPORT INFORMATION
  Report Type: Spontaneous
  Country: DE (occurrence: DE)
  Receive Date: 20200320
  Receipt Date: 20200320
  Transmission Date: 20200409
  Serious: Yes (Other)
  Sender: FDA-Public Use
  Company Number: DE-PFIZER INC-2020115832

PATIENT

DRUGS (2)
  1. CYTOTEC [Suspect]
     Active Substance: MISOPROSTOL
     Indication: LABOUR INDUCTION
     Dosage: 50 MG, UNK
     Route: 064
  2. CYTOTEC [Suspect]
     Active Substance: MISOPROSTOL
     Indication: PRETERM PREMATURE RUPTURE OF MEMBRANES

REACTIONS (2)
  - Foetal exposure during delivery [Unknown]
  - Foetal heart rate decreased [Unknown]

NARRATIVE: CASE EVENT DATE: 20190809
